FAERS Safety Report 7585450-7 (Version None)
Quarter: 2011Q3

REPORT INFORMATION
  Report Type: 
  Country: None (occurrence: None)
  Receive Date: 20110701
  Receipt Date: 20110608
  Transmission Date: 20111222
  Serious: Yes (Other)
  Sender: FDA-Public Use
  Company Number: US-BAYER-201028627NA

PATIENT
  Age: 24 Year
  Sex: Female
  Weight: 101.13 kg

DRUGS (4)
  1. YASMIN [Suspect]
     Indication: CONTRACEPTION
     Dosage: UNK UNK, QD
     Route: 048
     Dates: start: 20020201
  2. YASMIN [Suspect]
     Indication: PREMENSTRUAL SYNDROME
  3. EFFEXOR [Concomitant]
     Dosage: 75 MG, QD
  4. SYNTHROID [Concomitant]
     Dosage: UNK UNK, QD

REACTIONS (6)
  - CHOLECYSTITIS CHRONIC [None]
  - ANXIETY [None]
  - CHOLELITHIASIS [None]
  - DEPRESSION [None]
  - BACK PAIN [None]
  - ABDOMINAL PAIN [None]
